FAERS Safety Report 7051750-2 (Version None)
Quarter: 2010Q4

REPORT INFORMATION
  Report Type: 
  Country: None (occurrence: None)
  Receive Date: 20101019
  Receipt Date: 20101006
  Transmission Date: 20110411
  Serious: Yes (Other)
  Sender: FDA-Public Use
  Company Number: PHHY2010JP66967

PATIENT
  Age: 7 Year
  Sex: Female

DRUGS (3)
  1. TEGRETOL [Suspect]
     Indication: EPILEPSY
     Dosage: 600 MG PER DAY
  2. CLOBAZAM [Concomitant]
     Indication: EPILEPSY
     Dosage: 20 MG, UNK
  3. LAMOTRIGINE [Concomitant]
     Indication: EPILEPSY
     Dosage: 15 MG, UNK

REACTIONS (4)
  - COGNITIVE DISORDER [None]
  - DRUG INEFFECTIVE [None]
  - EPILEPSY [None]
  - STATUS EPILEPTICUS [None]
